FAERS Safety Report 5811947-3 (Version None)
Quarter: 2008Q3

REPORT INFORMATION
  Report Type: 
  Country: None (occurrence: None)
  Receive Date: 20080716
  Receipt Date: 20080704
  Transmission Date: 20090109
  Serious: Yes (Other)
  Sender: FDA-Public Use
  Company Number: GB-ELI_LILLY_AND_COMPANY-GB200804004866

PATIENT
  Sex: Male

DRUGS (1)
  1. STRATTERA [Suspect]
     Dosage: 85 MG, DAILY (1/D)
     Route: 065
     Dates: start: 20070101, end: 20071201

REACTIONS (4)
  - MOOD SWINGS [None]
  - PARANOIA [None]
  - SELF-INJURIOUS IDEATION [None]
  - THINKING ABNORMAL [None]
